FAERS Safety Report 16062802 (Version 1)
Quarter: 2019Q1

REPORT INFORMATION
  Report Type: Spontaneous
  Country: GR (occurrence: GR)
  Receive Date: 20190312
  Receipt Date: 20190312
  Transmission Date: 20190418
  Serious: Yes (Hospitalization)
  Sender: FDA-Public Use
  Company Number: GR-CERECOR, INC.-2019CER00038

PATIENT
  Age: 1 Day
  Sex: Male
  Weight: 1.51 kg

DRUGS (1)
  1. PREDNISOLONE. [Suspect]
     Active Substance: PREDNISOLONE
     Indication: PEMPHIGUS
     Route: 064

REACTIONS (5)
  - Foetal heart rate deceleration abnormality [Recovered/Resolved]
  - Caesarean section [None]
  - Premature baby [Recovered/Resolved]
  - Maternal condition affecting foetus [None]
  - Maternal drugs affecting foetus [None]
